FAERS Safety Report 9554098 (Version 1)
Quarter: 2013Q3

REPORT INFORMATION
  Report Type: Spontaneous
  Country: UA (occurrence: UA)
  Receive Date: 20130925
  Receipt Date: 20130925
  Transmission Date: 20140515
  Serious: Yes (Life-Threatening, Hospitalization)
  Sender: FDA-Public Use
  Company Number: PHHY2013UA105862

PATIENT
  Age: 59 Year
  Sex: Male

DRUGS (6)
  1. HYDROCHLOROTHIAZIDE [Suspect]
     Dosage: 12.5 MG, PER DAY
  2. AMLODIPINE [Concomitant]
     Dosage: 10 MG, PER DAY
  3. ACETYLSALICYLIC ACID [Concomitant]
     Dosage: 75 MG, PER DAY
  4. ATORVASTATIN [Concomitant]
     Dosage: 40 MG, PER DAY
  5. TELMISARTAN [Concomitant]
     Dosage: 80 MG, PER DAY
  6. CLOPIDOGREL [Concomitant]
     Dosage: 75 MG, PER DAY

REACTIONS (15)
  - Ventricular arrhythmia [Recovered/Resolved]
  - Ventricular extrasystoles [Recovered/Resolved]
  - Ventricular tachycardia [Recovered/Resolved]
  - Dizziness [Recovered/Resolved]
  - Heart rate irregular [Recovered/Resolved]
  - Presyncope [Recovered/Resolved]
  - Syncope [Recovered/Resolved]
  - Fall [Unknown]
  - Haematoma [Unknown]
  - Convulsion [Unknown]
  - Mobility decreased [Unknown]
  - Sinus bradycardia [Unknown]
  - Electrocardiogram QT prolonged [Unknown]
  - Hypokalaemia [Recovered/Resolved]
  - Muscular weakness [Unknown]
